FAERS Safety Report 14523988 (Version 2)
Quarter: 2018Q1

REPORT INFORMATION
  Report Type: Spontaneous
  Country: FI (occurrence: FI)
  Receive Date: 20180213
  Receipt Date: 20180214
  Transmission Date: 20180509
  Serious: Yes (Death)
  Sender: FDA-Public Use
  Company Number: FI-ROCHE-2065596

PATIENT
  Age: 73 Year
  Sex: Male

DRUGS (1)
  1. ESBRIET [Suspect]
     Active Substance: PIRFENIDONE
     Indication: IDIOPATHIC PULMONARY FIBROSIS
     Dosage: 1 CAPSULE 3 TIMES A DAY
     Route: 048
     Dates: start: 20171229

REACTIONS (2)
  - Dyspnoea [Fatal]
  - Therapy non-responder [Fatal]

NARRATIVE: CASE EVENT DATE: 20171231
